FAERS Safety Report 9193499 (Version 1)
Quarter: 2013Q1

REPORT INFORMATION
  Report Type: Spontaneous
  Country: US (occurrence: None)
  Receive Date: 20130325
  Receipt Date: 20130325
  Transmission Date: 20140127
  Serious: No
  Sender: FDA-Public Use
  Company Number: None

PATIENT
  Age: 57 Year
  Sex: Female
  Weight: 113.4 kg

DRUGS (3)
  1. KENALOG-40 INJ [Suspect]
     Indication: BACK PAIN
     Route: 008
  2. KENALOG-40 INJ [Suspect]
     Indication: ARTHRITIS
     Route: 008
  3. MARCAINE [Concomitant]

REACTIONS (2)
  - Headache [None]
  - Flushing [None]
